FAERS Safety Report 12415363 (Version 2)
Quarter: 2016Q3

REPORT INFORMATION
  Report Type: Spontaneous
  Country: US (occurrence: US)
  Receive Date: 20160530
  Receipt Date: 20160822
  Transmission Date: 20161109
  Serious: Yes (Other)
  Sender: FDA-Public Use
  Company Number: US-PFIZER INC-2016257970

PATIENT
  Age: 81 Year
  Sex: Male
  Weight: 88 kg

DRUGS (5)
  1. DORZOLAMIDE/TIMOLOL [Suspect]
     Active Substance: DORZOLAMIDE\TIMOLOL
     Indication: GLAUCOMA
     Dosage: 1 DROP BOTH EYES 2X/DAY
     Route: 047
     Dates: start: 20150506, end: 20160531
  2. DORZOLAMIDE [Suspect]
     Active Substance: DORZOLAMIDE
     Dosage: UNK
     Dates: start: 20141105, end: 20150506
  3. LATANOPROST. [Suspect]
     Active Substance: LATANOPROST
     Indication: GLAUCOMA
     Dosage: ONCE A DAY IN THE EVENING
     Dates: start: 2001
  4. TIMOLOL. [Suspect]
     Active Substance: TIMOLOL
     Dosage: UNK
  5. LATANOPROST. [Suspect]
     Active Substance: LATANOPROST
     Dosage: 1 DROP EACH EYE, NIGHTLY
     Route: 047
     Dates: start: 201506, end: 20160512

REACTIONS (8)
  - Ocular hypertension [Unknown]
  - Erythema [Recovered/Resolved]
  - Eye swelling [Unknown]
  - Ocular hyperaemia [Unknown]
  - Eye irritation [Recovered/Resolved]
  - Eye pruritus [Recovered/Resolved]
  - Swelling face [Recovered/Resolved]
  - Skin irritation [Unknown]

NARRATIVE: CASE EVENT DATE: 2016
